FAERS Safety Report 5749292-7 (Version None)
Quarter: 2008Q2

REPORT INFORMATION
  Report Type: 
  Country: None (occurrence: None)
  Receive Date: 20080522
  Receipt Date: 20080522
  Transmission Date: 20081010
  Serious: Yes (Life-Threatening, Hospitalization)
  Sender: FDA-Public Use
  Company Number: None

PATIENT
  Age: 83 Year
  Sex: Male

DRUGS (1)
  1. DIGITEK 0.125MG BERTEK [Suspect]
     Dosage: 1 TABLET DAILY PO
     Route: 048
     Dates: start: 20071101, end: 20080521

REACTIONS (4)
  - ARRHYTHMIA [None]
  - NAUSEA [None]
  - PHARMACEUTICAL PRODUCT COMPLAINT [None]
  - VOMITING [None]
